FAERS Safety Report 7588321-5 (Version None)
Quarter: 2011Q3

REPORT INFORMATION
  Report Type: 
  Country: None (occurrence: None)
  Receive Date: 20110705
  Receipt Date: 20100319
  Transmission Date: 20111222
  Serious: Yes (Death, Other)
  Sender: FDA-Public Use
  Company Number: US-BAYER-201016712NA

PATIENT
  Age: 56 Year
  Sex: Male
  Weight: 79 kg

DRUGS (18)
  1. NITROGLYCERIN [Concomitant]
     Indication: SURGERY
     Dosage: 0.688 MG, UNK
  2. DILANTIN [Concomitant]
     Dosage: 100 MG, 4 CAPSULES IN MORNING AND 3 CAPSULES IN THE EVE
     Route: 048
     Dates: start: 20060417
  3. HEPARIN [Concomitant]
     Indication: CORONARY ARTERY BYPASS
     Dosage: 23,000 UNITS
  4. ADVAIR DISKUS 100/50 [Concomitant]
     Dosage: 250 MCG,TWO PUFFS TWICE DAILY
  5. SPIRIVA [Concomitant]
     Dosage: 80 MCG, INHALATION
     Dates: start: 20060417
  6. TRIAMCINOLONE ACETONIDE [Concomitant]
     Dosage: 0.025%
     Route: 061
     Dates: start: 20060417
  7. FRESH FROZEN PLASMA [Concomitant]
     Indication: CORONARY ARTERY BYPASS
     Dosage: 797 ML
     Dates: start: 20060713
  8. LISINOPRIL [Concomitant]
     Indication: PRODUCT USED FOR UNKNOWN INDICATION
     Dosage: 10 MG, UNK
     Route: 048
  9. LASIX [Concomitant]
     Indication: CORONARY ARTERY BYPASS
     Dosage: 10 MG
  10. SOLU-MEDROL [Concomitant]
     Indication: PRODUCT USED FOR UNKNOWN INDICATION
     Route: 042
  11. ALBUTEROL SULFATE AUTOHALER [Concomitant]
     Dosage: 90 MCG/ACT INHALATION
     Dates: start: 20060417
  12. PLATELETS [Concomitant]
     Indication: CORONARY ARTERY BYPASS
     Dosage: 512 ML
     Dates: start: 20060713
  13. COUMADIN [Concomitant]
  14. TRASYLOL [Suspect]
     Dosage: 2 MILLION UNITS
     Dates: start: 20060713, end: 20060713
  15. PHENYTOIN [Concomitant]
     Indication: SURGERY
     Dosage: 1000 MG, UNK
  16. HYDROCORTISONE ACETATE [Concomitant]
     Dosage: 25 MG, QD INHALATION
     Dates: start: 20060417
  17. NIFEDIPINE [Concomitant]
     Indication: PRODUCT USED FOR UNKNOWN INDICATION
     Dosage: 60 MG, UNK
     Route: 048
  18. ADVAIR DISKUS 100/50 [Concomitant]
     Dosage: 250/50 MCG, EVERY 12 HOURS
     Dates: start: 20060417

REACTIONS (10)
  - RENAL FAILURE [None]
  - STRESS [None]
  - UNEVALUABLE EVENT [None]
  - FEAR [None]
  - ANHEDONIA [None]
  - RENAL IMPAIRMENT [None]
  - INJURY [None]
  - DEATH [None]
  - ANXIETY [None]
  - PAIN [None]
